FAERS Safety Report 7621642-6 (Version None)
Quarter: 2011Q3

REPORT INFORMATION
  Report Type: 
  Country: None (occurrence: None)
  Receive Date: 20110719
  Receipt Date: 20110712
  Transmission Date: 20111222
  Serious: Yes (Other)
  Sender: FDA-Public Use
  Company Number: US-TEVA-290231USA

PATIENT
  Sex: Female
  Weight: 56.296 kg

DRUGS (2)
  1. PARAGARD T 380A [Suspect]
     Indication: CONTRACEPTION
     Route: 015
     Dates: start: 20101221
  2. GLYCONATE [Concomitant]
     Indication: MINERAL SUPPLEMENTATION
     Dosage: 29 MILLIGRAM;
     Route: 048

REACTIONS (5)
  - CONVULSION [None]
  - MENOMETRORRHAGIA [None]
  - BLOOD IRON DECREASED [None]
  - METRORRHAGIA [None]
  - JOINT DISLOCATION [None]
